FAERS Safety Report 9065419 (Version 1)
Quarter: 2013Q1

REPORT INFORMATION
  Report Type: Spontaneous
  Country: CA (occurrence: CA)
  Receive Date: 20130130
  Receipt Date: 20130130
  Transmission Date: 20140127
  Serious: Yes (Life-Threatening, Hospitalization, Other)
  Sender: FDA-Public Use
  Company Number: CA-TEVA-383624USA

PATIENT
  Age: 7 Year
  Sex: Female
  Weight: 23 kg

DRUGS (3)
  1. CHLOROQUINE [Suspect]
     Dosage: 250 MILLIGRAM DAILY;
     Route: 048
  2. EPIVAL [Concomitant]
     Route: 065
  3. EPIVAL [Concomitant]
     Route: 065

REACTIONS (2)
  - Epilepsy [Unknown]
  - Grand mal convulsion [Unknown]
